FAERS Safety Report 22262773 (Version 2)
Quarter: 2023Q2

REPORT INFORMATION
  Report Type: Report from Study
  Country: US (occurrence: US)
  Receive Date: 20230428
  Receipt Date: 20230529
  Transmission Date: 20230722
  Serious: Yes (Hospitalization)
  Sender: FDA-Public Use
  Company Number: US-ABBVIE-4744878

PATIENT
  Sex: Female

DRUGS (1)
  1. HUMIRA [Suspect]
     Active Substance: ADALIMUMAB
     Indication: Psoriatic arthropathy
     Dosage: FORM STRENGTH: 40 MILLIGRAM CITRATE FREE
     Route: 058
     Dates: start: 20030430

REACTIONS (7)
  - Hypotension [Recovered/Resolved]
  - Transient ischaemic attack [Unknown]
  - Bradykinesia [Unknown]
  - Hospitalisation [Recovered/Resolved]
  - Visual impairment [Not Recovered/Not Resolved]
  - Impaired driving ability [Unknown]
  - Mobility decreased [Recovering/Resolving]

NARRATIVE: CASE EVENT DATE: 20220101
